FAERS Safety Report 7565070-0 (Version None)
Quarter: 2011Q2

REPORT INFORMATION
  Report Type: 
  Country: None (occurrence: None)
  Receive Date: 20110622
  Receipt Date: 20110513
  Transmission Date: 20111010
  Serious: Yes (Death)
  Sender: FDA-Public Use
  Company Number: US-MYLANLABS-2011S1008956

PATIENT
  Age: 57 Year
  Sex: Male
  Weight: 65.32 kg

DRUGS (10)
  1. COGENTIN [Concomitant]
  2. TRICOR [Concomitant]
  3. PANTOPRAZOLE [Concomitant]
  4. VITAMIN D [Concomitant]
  5. CYMBALTA [Concomitant]
  6. VITAMIN B [Concomitant]
  7. ASCORBIC ACID [Concomitant]
  8. CLOZAPINE [Suspect]
     Indication: SCHIZOPHRENIA
     Route: 048
     Dates: end: 20110301
  9. LORAZEPAM [Concomitant]
  10. AMBIEN [Concomitant]

REACTIONS (1)
  - NEOPLASM MALIGNANT [None]
